FAERS Safety Report 8353879 (Version 2)
Quarter: 2015Q2

REPORT INFORMATION
  Report Type: Spontaneous
  Country: US (occurrence: US)
  Receive Date: 20120125
  Receipt Date: 20150626
  Transmission Date: 20150821
  Serious: Yes (Other)
  Sender: FDA-Public Use
  Company Number: US-ROCHE-1007131

PATIENT
  Age: 21 Year
  Sex: Female
  Weight: 63.56 kg

DRUGS (4)
  1. ACCUTANE [Suspect]
     Active Substance: ISOTRETINOIN
     Dosage: DOSE WAS INCREASED TO 80 MG EVEN DAYS AND 120 MG ODD DAYS
     Route: 048
     Dates: start: 19941024
  2. ACCUTANE [Suspect]
     Active Substance: ISOTRETINOIN
     Route: 048
     Dates: start: 19941122
  3. ACCUTANE [Suspect]
     Active Substance: ISOTRETINOIN
     Indication: ACNE
     Route: 048
     Dates: start: 19940822
  4. ACCUTANE [Suspect]
     Active Substance: ISOTRETINOIN
     Route: 048
     Dates: start: 19941220, end: 19950217

REACTIONS (12)
  - Emotional distress [Unknown]
  - Inflammatory bowel disease [Unknown]
  - Irritable bowel syndrome [Unknown]
  - Colitis ulcerative [Unknown]
  - Acne [Unknown]
  - Alopecia [Unknown]
  - Suicidal ideation [Unknown]
  - Anxiety [Unknown]
  - Depression [Unknown]
  - Blood triglycerides increased [Unknown]
  - Proctitis ulcerative [Unknown]
  - Cheilitis [Unknown]

NARRATIVE: CASE EVENT DATE: 19940922
